FAERS Safety Report 6370668-1 (Version None)
Quarter: 2009Q3

REPORT INFORMATION
  Report Type: 
  Country: None (occurrence: None)
  Receive Date: 20090923
  Receipt Date: 20070402
  Transmission Date: 20100115
  Serious: Yes (Other)
  Sender: FDA-Public Use
  Company Number: US-ASTRAZENECA-2006UW27316

PATIENT
  Age: 9956 Day
  Sex: Female
  Weight: 99.8 kg

DRUGS (21)
  1. SEROQUEL [Suspect]
     Indication: BIPOLAR DISORDER
     Dosage: 100-500 MG
     Route: 048
     Dates: start: 20020411
  2. SEROQUEL [Suspect]
     Indication: MENTAL DISORDER
     Dosage: 100-500 MG
     Route: 048
     Dates: start: 20020411
  3. ABILIFY [Concomitant]
  4. GEODON [Concomitant]
  5. RISPERDAL [Concomitant]
  6. ADVAIR HFA [Concomitant]
  7. FLONASE [Concomitant]
  8. ALBUTEROL [Concomitant]
  9. LOPID [Concomitant]
  10. METFORMIN HCL [Concomitant]
  11. VASOTEC [Concomitant]
  12. ATENOLOL [Concomitant]
  13. TRAMADOL HCL [Concomitant]
  14. DICYCLOMINE [Concomitant]
  15. EFFEXOR [Concomitant]
  16. PREDNISONE [Concomitant]
  17. SINGULAIR [Concomitant]
  18. TOPAMAX [Concomitant]
  19. WELLBUTRIN SR [Concomitant]
  20. WELLBUTRIN XL [Concomitant]
  21. HYDROCHLOROTHIAZIDE [Concomitant]

REACTIONS (3)
  - DIABETES MELLITUS [None]
  - DIABETES MELLITUS INADEQUATE CONTROL [None]
  - WEIGHT INCREASED [None]
